FAERS Safety Report 18083437 (Version 1)
Quarter: 2020Q3

REPORT INFORMATION
  Report Type: Spontaneous
  Country: US (occurrence: US)
  Receive Date: 20200728
  Receipt Date: 20200728
  Transmission Date: 20201103
  Serious: No
  Sender: FDA-Public Use
  Company Number: US-PERRIGO-20US000162

PATIENT
  Age: 56 Year
  Sex: Male
  Weight: 81.63 kg

DRUGS (3)
  1. MINOXIDIL. [Suspect]
     Active Substance: MINOXIDIL
     Indication: ALOPECIA
     Dosage: 1 ML, BID
     Route: 061
     Dates: start: 201912, end: 201912
  2. FINASTERIDE. [Suspect]
     Active Substance: FINASTERIDE
     Indication: ALOPECIA
     Dosage: 1 MG, QD
     Route: 048
     Dates: start: 201912, end: 201912
  3. MINOXIDIL. [Suspect]
     Active Substance: MINOXIDIL
     Dosage: UNKNOWN, BID
     Route: 061
     Dates: start: 20200104

REACTIONS (4)
  - Rash [Recovering/Resolving]
  - Skin exfoliation [Recovering/Resolving]
  - Scab [Recovering/Resolving]
  - Underdose [Unknown]

NARRATIVE: CASE EVENT DATE: 201912
